FAERS Safety Report 24110420 (Version 1)
Quarter: 2024Q3

REPORT INFORMATION
  Report Type: Spontaneous
  Country: FR (occurrence: FR)
  Receive Date: 20240718
  Receipt Date: 20240718
  Transmission Date: 20241016
  Serious: Yes (Hospitalization)
  Sender: ABBVIE
  Company Number: None

PATIENT
  Age: 39 Year
  Sex: Female
  Weight: 110 kg

DRUGS (9)
  1. REFRESH CELLUVISC [Suspect]
     Active Substance: CARBOXYMETHYLCELLULOSE SODIUM
     Indication: Conjunctivitis allergic
     Route: 047
  2. FLUTICASONE PROPIONATE\FORMOTEROL FUMARATE [Suspect]
     Active Substance: FLUTICASONE PROPIONATE\FORMOTEROL FUMARATE
     Indication: Asthma
     Dosage: 125 MICROGRAMS/5 MICROGRAMS PER DOSE, SUSPENSION FOR INHALATION IN PRESSURIZED VIAL
     Route: 065
  3. SPAGLUMIC ACID [Suspect]
     Active Substance: SPAGLUMIC ACID
     Indication: Conjunctivitis allergic
     Route: 031
  4. MIRTAZAPINE [Suspect]
     Active Substance: MIRTAZAPINE
     Indication: Mixed anxiety and depressive disorder
     Route: 048
  5. MONTELUKAST [Suspect]
     Active Substance: MONTELUKAST SODIUM
     Indication: Urticaria chronic
     Dosage: SODIQUE
     Route: 048
  6. LEVOCETIRIZINE DIHYDROCHLORIDE [Suspect]
     Active Substance: LEVOCETIRIZINE DIHYDROCHLORIDE
     Indication: Urticaria chronic
     Route: 048
  7. INFLIXIMAB [Suspect]
     Active Substance: INFLIXIMAB
     Indication: Crohn^s disease
     Dosage: 120 MG, SOLUTION FOR INJECTION IN PRE-FILLED PEN
     Route: 058
  8. ESOMEPRAZOLE [Suspect]
     Active Substance: ESOMEPRAZOLE
     Indication: Product used for unknown indication
     Route: 048
  9. XOLAIR [Suspect]
     Active Substance: OMALIZUMAB
     Indication: Urticaria chronic
     Dosage: 150 MG, POWDER AND SOLVENT FOR SOLUTION FOR INJECTION
     Route: 058
     Dates: end: 20221130

REACTIONS (1)
  - Gestational diabetes [Recovered/Resolved]

NARRATIVE: CASE EVENT DATE: 20230327
